FAERS Safety Report 15848689 (Version 1)
Quarter: 2019Q1

REPORT INFORMATION
  Report Type: Report from Study
  Country: US (occurrence: US)
  Receive Date: 20190121
  Receipt Date: 20190121
  Transmission Date: 20190417
  Serious: No
  Sender: FDA-Public Use
  Company Number: US-AGIOS-1812US00336

PATIENT

DRUGS (2)
  1. TIBSOVO [Suspect]
     Active Substance: IVOSIDENIB
     Indication: ACUTE MYELOMONOCYTIC LEUKAEMIA
     Dosage: 250 MILLIGRAM, BID
     Route: 048
     Dates: start: 20181124
  2. ELIQUIS [Concomitant]
     Active Substance: APIXABAN
     Indication: PRODUCT USED FOR UNKNOWN INDICATION

REACTIONS (2)
  - Vaginal haemorrhage [Unknown]
  - Chest pain [Unknown]

NARRATIVE: CASE EVENT DATE: 20181213
